FAERS Safety Report 16162233 (Version 1)
Quarter: 2019Q2

REPORT INFORMATION
  Report Type: Spontaneous
  Country: US (occurrence: US)
  Receive Date: 20190404
  Receipt Date: 20190404
  Transmission Date: 20190711
  Serious: Yes (Death)
  Sender: FDA-Public Use
  Company Number: None

PATIENT
  Sex: Female
  Weight: 56.2 kg

DRUGS (3)
  1. EXEMESTANE. [Concomitant]
     Active Substance: EXEMESTANE
     Dates: start: 20190129, end: 20190404
  2. AFINITOR [Concomitant]
     Active Substance: EVEROLIMUS
     Dates: start: 20190129, end: 20190404
  3. DEXAMETHASONE. [Suspect]
     Active Substance: DEXAMETHASONE
     Indication: BREAST CANCER
     Dosage: ?          OTHER ROUTE:SWISH AND SPIT?
     Dates: start: 20190129, end: 20190404

REACTIONS (1)
  - Death [None]
